FAERS Safety Report 4741948-8 (Version None)
Quarter: 2005Q3

REPORT INFORMATION
  Report Type: 
  Country: None (occurrence: None)
  Receive Date: 20050801
  Receipt Date: 20050610
  Transmission Date: 20060218
  Serious: No
  Sender: FDA-Public Use
  Company Number: 2005PV000027

PATIENT
  Age: 63 Year
  Sex: Female
  Weight: 85.2762 kg

DRUGS (17)
  1. BYETTA [Suspect]
     Indication: DIABETES MELLITUS NON-INSULIN-DEPENDENT
     Dosage: 5 UG;BID;SC
     Route: 058
     Dates: start: 20050603
  2. CLIMARA ^BERLEX^ [Concomitant]
  3. DATA [Concomitant]
  4. SYNTHROID [Concomitant]
  5. FOLIC ACID [Concomitant]
  6. PLAQUENIL [Concomitant]
  7. NEXIUM [Concomitant]
  8. NEXIUM [Concomitant]
  9. METHOTREXATE [Concomitant]
  10. REMICADE [Concomitant]
  11. REGLAN [Concomitant]
  12. ALTACE [Concomitant]
  13. ACTOS ^LILLY^ [Concomitant]
  14. COZAAR [Concomitant]
  15. PROMETRIUM [Concomitant]
  16. METFORMIN [Concomitant]
  17. LIPITOR [Concomitant]

REACTIONS (5)
  - DECREASED APPETITE [None]
  - DYSGEUSIA [None]
  - FEELING JITTERY [None]
  - GLOSSODYNIA [None]
  - SOMNOLENCE [None]
